FAERS Safety Report 23913490 (Version 1)
Quarter: 2024Q2

REPORT INFORMATION
  Report Type: Spontaneous
  Country: US (occurrence: US)
  Receive Date: 20240529
  Receipt Date: 20240529
  Transmission Date: 20240715
  Serious: No
  Sender: FDA-Public Use
  Company Number: US-GILEAD-2024-0674290

PATIENT
  Sex: Male

DRUGS (1)
  1. BIKTARVY [Suspect]
     Active Substance: BICTEGRAVIR SODIUM\EMTRICITABINE\TENOFOVIR ALAFENAMIDE FUMARATE
     Indication: HIV infection
     Dosage: UNK (STARTED 6 WEEKS AGO)
     Route: 065

REACTIONS (3)
  - Rash [Not Recovered/Not Resolved]
  - Acarodermatitis [Not Recovered/Not Resolved]
  - Pruritus [Not Recovered/Not Resolved]
